FAERS Safety Report 15914089 (Version 1)
Quarter: 2019Q1

REPORT INFORMATION
  Report Type: Spontaneous
  Country: US (occurrence: US)
  Receive Date: 20190204
  Receipt Date: 20190204
  Transmission Date: 20190417
  Serious: Yes (Disabling)
  Sender: FDA-Public Use
  Company Number: None

PATIENT
  Age: 62 Year
  Sex: Female
  Weight: 67.5 kg

DRUGS (1)
  1. AJOVY [Suspect]
     Active Substance: FREMANEZUMAB-VFRM
     Indication: MIGRAINE
     Dosage: ?          QUANTITY:1 INJECTION(S);OTHER FREQUENCY:ONCE EVERY 30 DAYS;OTHER ROUTE:SUBCUTANEOUS INJECTION?
     Dates: start: 20190117, end: 20190117

REACTIONS (16)
  - Jaw disorder [None]
  - Drug ineffective [None]
  - Sinus pain [None]
  - Fatigue [None]
  - Gingival swelling [None]
  - Rhinalgia [None]
  - Toothache [None]
  - Ill-defined disorder [None]
  - Papilloedema [None]
  - Product complaint [None]
  - Asthenia [None]
  - Migraine [None]
  - Neuralgia [None]
  - Oral contusion [None]
  - Sinus congestion [None]
  - Gingival pain [None]

NARRATIVE: CASE EVENT DATE: 20190204
